FAERS Safety Report 4381553-9 (Version None)
Quarter: 2004Q2

REPORT INFORMATION
  Report Type: 
  Country: None (occurrence: None)
  Receive Date: 20040621
  Receipt Date: 20030814
  Transmission Date: 20050107
  Serious: Yes (Hospitalization, Disabling, Other)
  Sender: FDA-Public Use
  Company Number: US-MERCK-0308USA01526

PATIENT
  Age: 50 Year
  Sex: Male

DRUGS (2)
  1. VIOXX [Suspect]
     Indication: GOUT
     Route: 048
     Dates: start: 20010801
  2. VIOXX [Suspect]
     Route: 048
     Dates: start: 20010816, end: 20010829

REACTIONS (30)
  - ACCELERATED HYPERTENSION [None]
  - AMAUROSIS FUGAX [None]
  - ANXIETY [None]
  - ARTHRALGIA [None]
  - BRADYCARDIA [None]
  - CARDIAC FAILURE CONGESTIVE [None]
  - CAROTID ARTERY STENOSIS [None]
  - CARPAL TUNNEL SYNDROME [None]
  - CEREBROVASCULAR DISORDER [None]
  - CIRCADIAN RHYTHM SLEEP DISORDER [None]
  - CORONARY ARTERY DISEASE [None]
  - DEPRESSION [None]
  - DERMATITIS [None]
  - EMBOLIC CEREBRAL INFARCTION [None]
  - EPICONDYLITIS [None]
  - ERECTILE DYSFUNCTION [None]
  - HEADACHE [None]
  - HYPOTENSION [None]
  - MEMORY IMPAIRMENT [None]
  - MULTIPLE SCLEROSIS [None]
  - MYOCARDIAL INFARCTION [None]
  - MYOCARDIAL ISCHAEMIA [None]
  - OSTEOARTHRITIS [None]
  - PERIPHERAL VASCULAR DISORDER [None]
  - SINUSITIS [None]
  - SLEEP APNOEA SYNDROME [None]
  - SYNCOPE [None]
  - TENOSYNOVITIS [None]
  - VASCULAR GRAFT OCCLUSION [None]
  - VENTRICULAR HYPERTROPHY [None]
